FAERS Safety Report 14195968 (Version 1)
Quarter: 2017Q4

REPORT INFORMATION
  Report Type: Spontaneous
  Country: RU (occurrence: RU)
  Receive Date: 20171116
  Receipt Date: 20171116
  Transmission Date: 20180321
  Serious: Yes (Hospitalization)
  Sender: FDA-Public Use
  Company Number: RU-BAYER-2017-214960

PATIENT
  Sex: Female
  Weight: 87 kg

DRUGS (1)
  1. YARINA PLUS [Suspect]
     Active Substance: DROSPIRENONE\ETHINYL ESTRADIOL\LEVOMEFOLATE CALCIUM
     Indication: CONTRACEPTION
     Dosage: 1 DF, QD
     Route: 048
     Dates: start: 201511, end: 201604

REACTIONS (8)
  - Pulmonary embolism [None]
  - Dyspnoea [None]
  - Thrombophlebitis superficial [None]
  - Fall [None]
  - Oedema peripheral [None]
  - Pneumonia [None]
  - Deep vein thrombosis [None]
  - Loss of consciousness [None]

NARRATIVE: CASE EVENT DATE: 201604
